FAERS Safety Report 9351622 (Version 1)
Quarter: 2013Q2

REPORT INFORMATION
  Report Type: Spontaneous
  Country: US (occurrence: US)
  Receive Date: 20130617
  Receipt Date: 20130617
  Transmission Date: 20140414
  Serious: Yes (Other)
  Sender: FDA-Public Use
  Company Number: US-UPSHER-SMITH LABORATORIES, INC.-13000274

PATIENT
  Age: 61 Year
  Sex: Female

DRUGS (5)
  1. PACERONE (USL) [Suspect]
     Indication: VENTRICULAR TACHYCARDIA
     Dosage: 200 MG, QD
     Route: 048
     Dates: start: 201207
  2. WARFARIN [Concomitant]
     Dosage: UNK
  3. COMBIVENT                          /01033501/ [Concomitant]
     Dosage: UNK
  4. FUROSEMIDE [Concomitant]
     Dosage: UNK
  5. POTASSIUM [Concomitant]
     Dosage: UNK

REACTIONS (2)
  - Ventricular tachycardia [Not Recovered/Not Resolved]
  - Product quality issue [Not Recovered/Not Resolved]
